FAERS Safety Report 8907478 (Version 1)
Quarter: 2012Q4

REPORT INFORMATION
  Report Type: 
  Country: US (occurrence: US)
  Receive Date: 20121114
  Receipt Date: 20121114
  Transmission Date: 20130627
  Serious: Yes (Hospitalization, Other)
  Sender: FDA-Public Use
  Company Number: PHHY2012US104380

PATIENT
  Age: 45 Year
  Sex: Female

DRUGS (3)
  1. GEMCITABINE [Suspect]
     Indication: BILE DUCT CANCER
  2. OXALIPLATIN [Suspect]
     Indication: BILE DUCT CANCER
  3. BEVACIZUMAB [Suspect]
     Indication: BILE DUCT CANCER

REACTIONS (6)
  - Posterior reversible encephalopathy syndrome [Recovered/Resolved]
  - Hypertension [Recovered/Resolved]
  - Headache [Recovered/Resolved]
  - Grand mal convulsion [Recovered/Resolved]
  - Blood pressure increased [Recovered/Resolved]
  - Sinus tachycardia [Recovered/Resolved]
